FAERS Safety Report 19986040 (Version 1)
Quarter: 2021Q4

REPORT INFORMATION
  Report Type: Spontaneous
  Country: JP (occurrence: JP)
  Receive Date: 20211022
  Receipt Date: 20211022
  Transmission Date: 20220303
  Serious: Yes (Other)
  Sender: FDA-Public Use
  Company Number: 2021A779258

PATIENT
  Age: 66 Year
  Sex: Female

DRUGS (8)
  1. IMFINZI [Suspect]
     Active Substance: DURVALUMAB
     Indication: Small cell lung cancer
     Route: 041
  2. CISPLATIN [Concomitant]
     Active Substance: CISPLATIN
     Indication: Small cell lung cancer
     Route: 065
  3. ETOPOSIDE [Concomitant]
     Active Substance: ETOPOSIDE
     Indication: Small cell lung cancer
     Dosage: ON DAY 1, 2 AND 3 OF EACH CYCLE.
     Route: 065
  4. PALONOSETRON HYDROCHLORIDE [Concomitant]
     Active Substance: PALONOSETRON HYDROCHLORIDE
     Dosage: ON DAY 1, NUMBER OF SEPARATE DOSAGES UNKNOWN
     Route: 065
  5. FOSAPREPITANT [Concomitant]
     Active Substance: FOSAPREPITANT
     Dosage: ON DAY 1, NUMBER OF SEPARATE DOSAGES UNKNOWN
     Route: 065
  6. DEXAMETHASONE [Concomitant]
     Active Substance: DEXAMETHASONE
     Dosage: 13.2 MG ON DAY 1, 8 MG ON DAY 2 TO DAY 3, NUMBER OF SEPARATE DOSAGES UNKNOWN
     Route: 065
  7. SODIUM CHLORIDE [Concomitant]
     Active Substance: SODIUM CHLORIDE
     Route: 065
  8. GLYCERIN [Concomitant]
     Active Substance: GLYCERIN
     Dosage: DOSE UNKNOWN
     Route: 065

REACTIONS (1)
  - Febrile neutropenia [Unknown]
